FAERS Safety Report 13171447 (Version 2)
Quarter: 2017Q1

REPORT INFORMATION
  Report Type: Spontaneous
  Country: US (occurrence: US)
  Receive Date: 20170201
  Receipt Date: 20170222
  Transmission Date: 20170428
  Serious: Yes (Hospitalization, Other)
  Sender: FDA-Public Use
  Company Number: US-AUROBINDO-AUR-APL-2017-28615

PATIENT
  Age: 7 Year
  Sex: Male

DRUGS (7)
  1. 6-MERCAPTOPURINE MONOHYDRATE [Suspect]
     Active Substance: MERCAPTOPURINE
     Indication: ACUTE LYMPHOCYTIC LEUKAEMIA
     Dosage: 75 MG/M2, UNK
     Route: 065
  2. METHOTREXATE. [Interacting]
     Active Substance: METHOTREXATE
     Indication: CHEMOTHERAPY
     Dosage: UNK
     Route: 065
  3. CIPROFLOXACIN. [Interacting]
     Active Substance: CIPROFLOXACIN
     Indication: BK VIRUS INFECTION
  4. VINCRISTINE [Concomitant]
     Active Substance: VINCRISTINE
     Indication: ACUTE LYMPHOCYTIC LEUKAEMIA
     Dosage: 1.5 MG/M2, INTRAVENOUS VINCRISTINE (1.5 MG/M2/DOSE) ONCE EVERY 12 WEEKS
     Route: 042
  5. CIPROFLOXACIN. [Suspect]
     Active Substance: CIPROFLOXACIN
     Indication: VIRAEMIA
     Route: 065
  6. DEXAMETHASONE. [Concomitant]
     Active Substance: DEXAMETHASONE
     Indication: ACUTE LYMPHOCYTIC LEUKAEMIA
     Dosage: 6 MG/M2, 5-DAY COURSE OF DEXAMETHASONE (6 MG/M2/D)
     Route: 065
  7. METHOTREXATE. [Interacting]
     Active Substance: METHOTREXATE
     Indication: ACUTE LYMPHOCYTIC LEUKAEMIA
     Dosage: WEEKLY MTX (20 MG/M2/ DOSE/WK)
     Route: 048

REACTIONS (12)
  - Budd-Chiari syndrome [Recovered/Resolved]
  - Hepatomegaly [Recovered/Resolved]
  - Drug interaction [Recovered/Resolved]
  - Venoocclusive liver disease [Recovered/Resolved]
  - Abdominal distension [Recovered/Resolved]
  - Jaundice [Recovered/Resolved]
  - Hyperbilirubinaemia [Recovered/Resolved]
  - Ascites [Recovered/Resolved]
  - Toxicity to various agents [Recovered/Resolved]
  - Weight increased [Recovered/Resolved]
  - Hepatitis viral [Recovered/Resolved]
  - Hypertension [Recovered/Resolved]
